FAERS Safety Report 13834232 (Version 6)
Quarter: 2017Q4

REPORT INFORMATION
  Report Type: Spontaneous
  Country: US (occurrence: US)
  Receive Date: 20170804
  Receipt Date: 20171107
  Transmission Date: 20180320
  Serious: Yes (Hospitalization, Other)
  Sender: FDA-Public Use
  Company Number: US-PFIZER INC-2017334397

PATIENT
  Age: 59 Year
  Sex: Female

DRUGS (11)
  1. ISOPROPYL ALCOHOL. [Concomitant]
     Active Substance: ISOPROPYL ALCOHOL
     Dosage: 70%
  2. RIBAVIRIN. [Suspect]
     Active Substance: RIBAVIRIN
     Indication: HEPATITIS C
     Dosage: UNK
  3. CHLORHEXIDINE GLUCONATE. [Concomitant]
     Active Substance: CHLORHEXIDINE GLUCONATE
     Dosage: 10.5 ML, UNK (10.5-ML APPLICATOR OF 2% CHLORHEXIDINE GLUCONATE)
  4. TRAMADOL. [Concomitant]
     Active Substance: TRAMADOL
     Indication: PAIN
  5. DICLOFENAC [Concomitant]
     Active Substance: DICLOFENAC
  6. LIDOCAINE HCL [Suspect]
     Active Substance: LIDOCAINE HYDROCHLORIDE
     Indication: ANAESTHESIA
     Dosage: 1%
     Route: 058
  7. LIDOCAINE HCL [Suspect]
     Active Substance: LIDOCAINE HYDROCHLORIDE
     Indication: BACK PAIN
     Dosage: 3 ML, UNK
  8. IOHEXOL [Suspect]
     Active Substance: IOHEXOL
     Dosage: 2 ML OF IOHEXOL 180 MG/ML
     Route: 014
  9. TRIAMCINOLONE [Suspect]
     Active Substance: TRIAMCINOLONE
     Indication: BACK PAIN
     Dosage: 40 MG, SINGLE (SINGLE-DOSE VIALS, 40 MG OF TRIAMCINOLONE)
  10. PEGINTERFERON ALFA-2A. [Suspect]
     Active Substance: PEGINTERFERON ALFA-2A
     Indication: HEPATITIS C
  11. TELAPREVIR [Suspect]
     Active Substance: TELAPREVIR
     Indication: HEPATITIS C
     Dosage: UNK

REACTIONS (6)
  - Intervertebral discitis [Unknown]
  - Osteomyelitis [Unknown]
  - Staphylococcal infection [Unknown]
  - Meningitis [Unknown]
  - Endocarditis [Unknown]
  - Extradural abscess [Unknown]
